FAERS Safety Report 10495149 (Version 1)
Quarter: 2014Q4

REPORT INFORMATION
  Report Type: Spontaneous
  Country: DE (occurrence: DE)
  Receive Date: 20141003
  Receipt Date: 20141003
  Transmission Date: 20150528
  Serious: Yes (Life-Threatening)
  Sender: FDA-Public Use
  Company Number: DE-WATSON-2014-21048

PATIENT
  Age: 76 Year
  Sex: Male
  Weight: 98 kg

DRUGS (7)
  1. MELPERON [Concomitant]
     Active Substance: MELPERONE
     Indication: PRODUCT USED FOR UNKNOWN INDICATION
     Dosage: 25 MG, DAILY
     Route: 048
  2. LEVOFLOXACIN (UNKNOWN) [Suspect]
     Active Substance: LEVOFLOXACIN
     Indication: LIVER ABSCESS
     Dosage: 500 MG, DAILY
     Route: 048
     Dates: start: 20140910, end: 20140912
  3. BELOC-ZOC COMP [Concomitant]
     Active Substance: HYDROCHLOROTHIAZIDE\METOPROLOL SUCCINATE
     Indication: CARDIAC FAILURE
     Dosage: UNK
     Route: 048
  4. DIOVAN [Concomitant]
     Active Substance: VALSARTAN
     Indication: HYPERTENSION
     Dosage: 160 MG, DAILY
     Route: 048
  5. LONOLOX [Concomitant]
     Active Substance: MINOXIDIL
     Indication: HYPERTENSION
     Dosage: 20 MG, DAILY
     Route: 048
  6. PANTOZOL [Concomitant]
     Active Substance: PANTOPRAZOLE SODIUM
     Indication: PANCREATITIS
     Dosage: 40 MG, DAILY
     Route: 048
  7. SIMVASTATIN. [Concomitant]
     Active Substance: SIMVASTATIN
     Indication: HYPERLIPIDAEMIA
     Dosage: 20 MG, DAILY
     Route: 048

REACTIONS (2)
  - Long QT syndrome [Recovering/Resolving]
  - Resuscitation [Recovering/Resolving]

NARRATIVE: CASE EVENT DATE: 20140911
